FAERS Safety Report 8350372-0 (Version None)
Quarter: 2012Q2

REPORT INFORMATION
  Report Type: 
  Country: None (occurrence: None)
  Receive Date: 20120510
  Receipt Date: 20120508
  Transmission Date: 20120825
  Serious: Yes (Death, Hospitalization, Other)
  Sender: FDA-Public Use
  Company Number: PHHY2012MX029859

PATIENT
  Sex: Male

DRUGS (7)
  1. ACEMETACIN [Concomitant]
     Indication: PAIN
     Dosage: 901 MG, BID
     Dates: start: 20110901
  2. LOMOTRIGINA [Concomitant]
     Dosage: 0.5 TABLET BY DAY AT NIGHT
     Dates: start: 20100101, end: 20120101
  3. SULFAMETHOXAZOLE + TRIMETHOPRIM [Concomitant]
     Dosage: UNK UKN, UNK
     Dates: start: 20110901
  4. OMEPRAZOLE [Concomitant]
     Dosage: ONCE A DAY
     Dates: end: 20111201
  5. DEXTROPROPOXYPHENE [Concomitant]
     Indication: PAIN
     Dosage: 60 MG, BID
     Dates: start: 20110901
  6. ZOLEDRONOC ACID [Suspect]
     Indication: OSTEOPOROSIS
     Dosage: 5 MG/100 ML ONCE A YEAR
     Route: 042
     Dates: start: 20111006
  7. COR-30 [Concomitant]
     Indication: HYPOTENSION
     Dosage: UNK UKN, UNK
     Dates: start: 20111221

REACTIONS (6)
  - CARDIAC FAILURE [None]
  - DEMENTIA ALZHEIMER'S TYPE [None]
  - CARDIO-RESPIRATORY ARREST [None]
  - PNEUMONIA [None]
  - URINARY TRACT INFECTION [None]
  - ANURIA [None]
